FAERS Safety Report 7735141-4 (Version None)
Quarter: 2011Q3

REPORT INFORMATION
  Report Type: 
  Country: None (occurrence: None)
  Receive Date: 20110907
  Receipt Date: 20110830
  Transmission Date: 20111222
  Serious: Yes (Other)
  Sender: FDA-Public Use
  Company Number: CA-ROCHE-800836

PATIENT
  Sex: Male

DRUGS (4)
  1. XELODA [Suspect]
     Dosage: START DATE: AUG 2011
     Route: 048
  2. FOLFOX-B [Concomitant]
     Dates: start: 20080101
  3. FOLFOX REGIMEN [Concomitant]
     Dosage: DRUG NAME : FOLFOX
  4. AVASTIN [Suspect]
     Route: 042
     Dates: start: 20080101

REACTIONS (6)
  - DIARRHOEA [None]
  - HAEMOGLOBIN DECREASED [None]
  - DISEASE PROGRESSION [None]
  - MYALGIA [None]
  - HEPATIC ENZYME DECREASED [None]
  - PALMAR-PLANTAR ERYTHRODYSAESTHESIA SYNDROME [None]
